FAERS Safety Report 16560872 (Version 2)
Quarter: 2019Q4

REPORT INFORMATION
  Report Type: Report from Study
  Country: DE (occurrence: DE)
  Receive Date: 20190711
  Receipt Date: 20191219
  Transmission Date: 20200122
  Serious: Yes (Hospitalization, Other)
  Sender: FDA-Public Use
  Company Number: DE-MYLANLABS-2019M1063366

PATIENT
  Age: 75 Year
  Sex: Female

DRUGS (4)
  1. METHOTREXATE. [Suspect]
     Active Substance: METHOTREXATE
     Indication: PRODUCT USED FOR UNKNOWN INDICATION
     Dosage: 15 MILLIGRAM, QW
     Route: 065
  2. BENEPALI [Suspect]
     Active Substance: ETANERCEPT
     Dosage: 25 MILLIGRAM, QW
     Route: 065
     Dates: start: 201801
  3. BENEPALI [Suspect]
     Active Substance: ETANERCEPT
     Indication: RHEUMATOID ARTHRITIS
     Dosage: 25 MILLIGRAM, QW
     Route: 065
  4. BENEPALI [Suspect]
     Active Substance: ETANERCEPT
     Dosage: 50 MILLIGRAM
     Route: 065
     Dates: start: 201705, end: 201708

REACTIONS (6)
  - Oesophageal candidiasis [Unknown]
  - Intervertebral disc protrusion [Not Recovered/Not Resolved]
  - Product use issue [Unknown]
  - Chronic gastritis [Unknown]
  - Spinal stenosis [Not Recovered/Not Resolved]
  - Oesophageal stenosis [Unknown]

NARRATIVE: CASE EVENT DATE: 20180901
